FAERS Safety Report 8575252-7 (Version None)
Quarter: 2012Q3

REPORT INFORMATION
  Report Type: 
  Country: None (occurrence: None)
  Receive Date: 20120807
  Receipt Date: 20120724
  Transmission Date: 20120928
  Serious: Yes (Death)
  Sender: FDA-Public Use
  Company Number: MX-SANOFI-AVENTIS-2012SA052493

PATIENT
  Age: 81 Year
  Sex: Male

DRUGS (2)
  1. LANTUS [Suspect]
     Indication: TYPE 2 DIABETES MELLITUS
     Route: 058
     Dates: start: 20070101, end: 20120302
  2. ANTIHYPERTENSIVES [Concomitant]
     Dates: end: 20120302

REACTIONS (2)
  - MYOCARDIAL INFARCTION [None]
  - HYPERGLYCAEMIA [None]
